FAERS Safety Report 8016542-6 (Version None)
Quarter: 2011Q4

REPORT INFORMATION
  Report Type: 
  Country: None (occurrence: None)
  Receive Date: 20111230
  Receipt Date: 20111217
  Transmission Date: 20120403
  Serious: Yes (Death, Hospitalization)
  Sender: FDA-Public Use
  Company Number: US-AMGEN-US317561

PATIENT
  Age: 40 Year
  Sex: Female

DRUGS (3)
  1. CORTICOSTEROID NOS [Concomitant]
     Dosage: UNK UNK, UNK
  2. IRON SULFATETHIAMIN COMPOUND TAB [Suspect]
  3. NPLATE [Suspect]
     Indication: IDIOPATHIC THROMBOCYTOPENIC PURPURA
     Dosage: 5 MUG/KG, UNK
     Dates: start: 20081017, end: 20081107

REACTIONS (7)
  - ACUTE RESPIRATORY DISTRESS SYNDROME [None]
  - UTERINE HAEMORRHAGE [None]
  - SPLENECTOMY [None]
  - CEREBRAL HAEMORRHAGE [None]
  - HAEMORRHAGE [None]
  - PLATELET COUNT DECREASED [None]
  - MENOMETRORRHAGIA [None]
